FAERS Safety Report 8042588-8 (Version None)
Quarter: 2012Q1

REPORT INFORMATION
  Report Type: 
  Country: None (occurrence: None)
  Receive Date: 20120112
  Receipt Date: 20120103
  Transmission Date: 20120608
  Serious: Yes (Life-Threatening, Other)
  Sender: FDA-Public Use
  Company Number: NL-TEVA-313898ISR

PATIENT
  Sex: Female
  Weight: 80 kg

DRUGS (1)
  1. COPAXONE [Suspect]
     Indication: MULTIPLE SCLEROSIS
     Dosage: 20 MILLIGRAM;
     Route: 058
     Dates: start: 20110711, end: 20111207

REACTIONS (2)
  - CARDIAC FAILURE [None]
  - CARDIOMEGALY [None]
